FAERS Safety Report 5507741-3 (Version None)
Quarter: 2007Q4

REPORT INFORMATION
  Report Type: 
  Country: None (occurrence: None)
  Receive Date: 20071106
  Receipt Date: 20071029
  Transmission Date: 20080405
  Serious: Yes (Other)
  Sender: FDA-Public Use
  Company Number: US-ASTRAZENECA-2007UW25069

PATIENT
  Age: 60 Year
  Sex: Male
  Weight: 97.5 kg

DRUGS (9)
  1. CRESTOR [Suspect]
     Route: 048
     Dates: start: 20060101
  2. ANTARA [Concomitant]
  3. AMITRIPTYLINE HCL [Concomitant]
  4. GLYBURIDE [Concomitant]
  5. TOPROL-XL [Concomitant]
  6. ASPIRIN [Concomitant]
     Route: 048
  7. LYRICA [Concomitant]
  8. ACTOPLUS MET [Concomitant]
     Dosage: 15/500 X 2
  9. LANTUS [Concomitant]

REACTIONS (1)
  - MYOCARDIAL INFARCTION [None]
